FAERS Safety Report 5726940-9 (Version None)
Quarter: 2008Q2

REPORT INFORMATION
  Report Type: 
  Country: None (occurrence: None)
  Receive Date: 20080501
  Receipt Date: 20080226
  Transmission Date: 20081010
  Serious: Yes (Hospitalization)
  Sender: FDA-Public Use
  Company Number: PHEH2008US02218

PATIENT
  Sex: Female

DRUGS (2)
  1. DIOVAN HCT [Suspect]
     Indication: HYPERTENSION
     Dosage: 1, QD, ORAL
     Route: 048
     Dates: start: 20020101, end: 20060123
  2. ALTACE [Suspect]
     Dates: end: 20060123

REACTIONS (5)
  - HYPERSENSITIVITY [None]
  - OEDEMA MOUTH [None]
  - ORAL PRURITUS [None]
  - PRURITUS GENERALISED [None]
  - RASH GENERALISED [None]
